FAERS Safety Report 12168723 (Version 2)
Quarter: 2016Q1

REPORT INFORMATION
  Report Type: Spontaneous
  Country: BR (occurrence: BR)
  Receive Date: 20160310
  Receipt Date: 20160314
  Transmission Date: 20160526
  Serious: Yes (Other)
  Sender: FDA-Public Use
  Company Number: PHHY2016BR031088

PATIENT
  Age: 12 Year
  Sex: Male
  Weight: 52 kg

DRUGS (4)
  1. MONTELUKAST [Concomitant]
     Active Substance: MONTELUKAST SODIUM
     Indication: PRODUCT USED FOR UNKNOWN INDICATION
     Dosage: 5 MG, QD
     Route: 065
  2. BECLOMETASONE [Concomitant]
     Active Substance: BECLOMETHASONE DIPROPIONATE
     Indication: PRODUCT USED FOR UNKNOWN INDICATION
     Dosage: 1 DF (1 SPRAY IN EACH NOSTRIL), QD
     Route: 045
  3. SALBUTAMOL [Concomitant]
     Active Substance: ALBUTEROL
     Indication: PRODUCT USED FOR UNKNOWN INDICATION
     Dosage: 3-4 DF (SPRAYS), PRN (BEFORE EXCERCISES, WHEN PERFORMED)
     Route: 065
  4. FORASEQ [Suspect]
     Active Substance: BUDESONIDE\FORMOTEROL FUMARATE
     Indication: PRODUCT USED FOR UNKNOWN INDICATION
     Dosage: UNK, BID
     Route: 065

REACTIONS (18)
  - Pneumonia [Unknown]
  - Nasal congestion [Unknown]
  - Obstruction [Unknown]
  - Nasal mucosal hypertrophy [Unknown]
  - Eye pruritus [Unknown]
  - Rhinorrhoea [Unknown]
  - Conjunctival hyperaemia [Unknown]
  - Cough [Unknown]
  - Sinusitis [Unknown]
  - Snoring [Unknown]
  - Secretion discharge [Unknown]
  - Nasal pruritus [Unknown]
  - Poor quality sleep [Unknown]
  - Skin test positive [Unknown]
  - Wheezing [Unknown]
  - Dyspnoea [Unknown]
  - Lacrimation increased [Unknown]
  - Drooling [Unknown]
